FAERS Safety Report 20532703 (Version 46)
Quarter: 2025Q3

REPORT INFORMATION
  Report Type: Report from Study
  Country: US (occurrence: US)
  Receive Date: 20220301
  Receipt Date: 20250723
  Transmission Date: 20251021
  Serious: Yes (Hospitalization, Other)
  Sender: TAKEDA
  Company Number: US-TAKEDA-US201925108

PATIENT
  Age: 41 Year
  Sex: Female
  Weight: 63.002 kg

DRUGS (56)
  1. HUMAN IMMUNOGLOBULIN G [Suspect]
     Active Substance: HUMAN IMMUNOGLOBULIN G
     Indication: Primary immunodeficiency syndrome
     Dosage: 40 GRAM, Q3WEEKS
     Dates: start: 20230123
  2. HUMAN IMMUNOGLOBULIN G [Suspect]
     Active Substance: HUMAN IMMUNOGLOBULIN G
     Indication: Hypogammaglobulinaemia
     Dosage: 50 GRAM, MONTHLY
  3. HUMAN IMMUNOGLOBULIN G [Suspect]
     Active Substance: HUMAN IMMUNOGLOBULIN G
     Indication: Immunodeficiency common variable
     Dosage: 40 GRAM, Q3WEEKS
  4. HUMAN IMMUNOGLOBULIN G [Suspect]
     Active Substance: HUMAN IMMUNOGLOBULIN G
     Indication: Alpha-1 antitrypsin deficiency
     Dosage: 35 GRAM, Q3WEEKS
  5. HUMAN IMMUNOGLOBULIN G [Suspect]
     Active Substance: HUMAN IMMUNOGLOBULIN G
     Dosage: 25 GRAM, Q3WEEKS
  6. RITUXAN [Suspect]
     Active Substance: RITUXIMAB
     Indication: Product used for unknown indication
  7. EPINEPHRINE [Concomitant]
     Active Substance: EPINEPHRINE
  8. ACETAMINOPHEN [Concomitant]
     Active Substance: ACETAMINOPHEN
  9. NABUMETONE [Concomitant]
     Active Substance: NABUMETONE
  10. Artificial tears [Concomitant]
  11. KETOROLAC TROMETHAMINE [Concomitant]
     Active Substance: KETOROLAC TROMETHAMINE
  12. TRUXIMA [Concomitant]
     Active Substance: RITUXIMAB-ABBS
  13. HEPARIN [Concomitant]
     Active Substance: HEPARIN SODIUM
  14. SODIUM CHLORIDE [Concomitant]
     Active Substance: SODIUM CHLORIDE
  15. CICLOPIROX [Concomitant]
     Active Substance: CICLOPIROX
  16. PATADAY [Concomitant]
     Active Substance: OLOPATADINE HYDROCHLORIDE
     Dosage: UNK UNK, QD
  17. AZELASTINE HYDROCHLORIDE [Concomitant]
     Active Substance: AZELASTINE HYDROCHLORIDE
  18. VITAMIN D3 [Concomitant]
     Active Substance: CHOLECALCIFEROL
  19. ALBUTEROL SULFATE [Concomitant]
     Active Substance: ALBUTEROL SULFATE
  20. HYDROXYCHLOROQUINE [Concomitant]
     Active Substance: HYDROXYCHLOROQUINE
  21. ASPIRIN [Concomitant]
     Active Substance: ASPIRIN
  22. Probiomax [Concomitant]
  23. LIDOCAINE [Concomitant]
     Active Substance: LIDOCAINE
  24. AMPHETAMINE SULFATE [Concomitant]
     Active Substance: AMPHETAMINE SULFATE
  25. DEXEDRINE [Concomitant]
     Active Substance: DEXTROAMPHETAMINE SULFATE
  26. MONTELUKAST SODIUM [Concomitant]
     Active Substance: MONTELUKAST SODIUM
  27. IPRATROPIUM BROMIDE [Concomitant]
     Active Substance: IPRATROPIUM BROMIDE
  28. DIPHENHYDRAMINE [Concomitant]
     Active Substance: DIPHENHYDRAMINE
  29. SODIUM CHLORIDE [Concomitant]
     Active Substance: SODIUM CHLORIDE
  30. ONDANSETRON HYDROCHLORIDE [Concomitant]
     Active Substance: ONDANSETRON HYDROCHLORIDE
  31. MEDROL [Concomitant]
     Active Substance: METHYLPREDNISOLONE
  32. AZITHROMYCIN [Concomitant]
     Active Substance: AZITHROMYCIN
  33. PREDNISONE [Concomitant]
     Active Substance: PREDNISONE
  34. BENADRYL [Concomitant]
     Active Substance: DIPHENHYDRAMINE HYDROCHLORIDE
  35. MUCINEX [Concomitant]
     Active Substance: GUAIFENESIN
  36. AUGMENTIN [Concomitant]
     Active Substance: AMOXICILLIN\CLAVULANATE POTASSIUM
  37. PATANASE [Concomitant]
     Active Substance: OLOPATADINE HYDROCHLORIDE
  38. SYMBICORT [Concomitant]
     Active Substance: BUDESONIDE\FORMOTEROL FUMARATE DIHYDRATE
  39. ALEVE [Concomitant]
     Active Substance: NAPROXEN SODIUM
  40. TYLENOL [Concomitant]
     Active Substance: ACETAMINOPHEN
  41. TRIVORA [Concomitant]
     Active Substance: ETHINYL ESTRADIOL\LEVONORGESTREL
  42. CYCLOBENZAPRINE HYDROCHLORIDE [Concomitant]
     Active Substance: CYCLOBENZAPRINE HYDROCHLORIDE
  43. MELOXICAM [Concomitant]
     Active Substance: MELOXICAM
  44. DIPHENHYDRAMINE HYDROCHLORIDE [Concomitant]
     Active Substance: DIPHENHYDRAMINE HYDROCHLORIDE
  45. ASPIRIN [Concomitant]
     Active Substance: ASPIRIN
  46. SALINE [Concomitant]
     Active Substance: SODIUM CHLORIDE
  47. SACCHAROMYCES CEREVISIAE [Concomitant]
     Active Substance: SACCHAROMYCES CEREVISIAE
  48. SUNOSI [Concomitant]
     Active Substance: SOLRIAMFETOL
  49. B active [Concomitant]
  50. PERCOCET [Concomitant]
     Active Substance: ACETAMINOPHEN\OXYCODONE HYDROCHLORIDE
  51. MIRALAX [Concomitant]
     Active Substance: POLYETHYLENE GLYCOL 3350
  52. METOPROLOL SUCCINATE [Concomitant]
     Active Substance: METOPROLOL SUCCINATE
  53. MAGNESIUM GLYCINATE [Concomitant]
     Active Substance: MAGNESIUM GLYCINATE
  54. JUBLIA [Concomitant]
     Active Substance: EFINACONAZOLE
  55. XANAX [Concomitant]
     Active Substance: ALPRAZOLAM
  56. ZOLOFT [Concomitant]
     Active Substance: SERTRALINE HYDROCHLORIDE

REACTIONS (49)
  - Sepsis [Unknown]
  - Angioedema [Unknown]
  - Endocarditis [Unknown]
  - Pneumonia [Unknown]
  - Vascular device infection [Unknown]
  - Clostridium difficile infection [Recovering/Resolving]
  - Superior vena cava occlusion [Recovered/Resolved]
  - Product availability issue [Unknown]
  - Pain [Unknown]
  - Hypertension [Recovered/Resolved]
  - Migraine [Unknown]
  - Fatigue [Not Recovered/Not Resolved]
  - Infusion related reaction [Recovering/Resolving]
  - Post procedural complication [Unknown]
  - Gingival bleeding [Unknown]
  - Neck pain [Unknown]
  - Skin irritation [Unknown]
  - Respiratory tract infection [Unknown]
  - Obstruction [Unknown]
  - Complication associated with device [Unknown]
  - Nasopharyngitis [Unknown]
  - Fall [Unknown]
  - Nasal ulcer [Unknown]
  - Infection [Unknown]
  - Viral infection [Unknown]
  - Bedridden [Unknown]
  - Device occlusion [Unknown]
  - Musculoskeletal chest pain [Unknown]
  - Upper respiratory tract infection [Recovered/Resolved]
  - Infusion site haemorrhage [Recovered/Resolved]
  - Infusion site extravasation [Unknown]
  - Contusion [Unknown]
  - Pain in extremity [Unknown]
  - Headache [Recovered/Resolved]
  - Hot flush [Unknown]
  - Hypotension [Recovering/Resolving]
  - Tremor [Unknown]
  - Vomiting [Not Recovered/Not Resolved]
  - Bacterial infection [Unknown]
  - COVID-19 [Recovered/Resolved]
  - Insurance issue [Unknown]
  - Connective tissue disorder [Unknown]
  - Cartilage injury [Recovering/Resolving]
  - Gastrointestinal disorder [Unknown]
  - Influenza [Unknown]
  - Cough [Unknown]
  - Pyrexia [Not Recovered/Not Resolved]
  - Nausea [Unknown]
  - Back pain [Not Recovered/Not Resolved]

NARRATIVE: CASE EVENT DATE: 20230822
